FAERS Safety Report 25688534 (Version 1)
Quarter: 2025Q3

REPORT INFORMATION
  Report Type: Spontaneous
  Country: US (occurrence: US)
  Receive Date: 20250818
  Receipt Date: 20250818
  Transmission Date: 20251021
  Serious: No
  Sender: RECKITT BENCKISER
  Company Number: US-PROD-AS2-212756134-20-24-USA-RB-0011238

PATIENT
  Age: 89 Year
  Sex: Male
  Weight: 73.482 kg

DRUGS (2)
  1. MUCINEX MAXIMUM STRENGTH [Suspect]
     Active Substance: GUAIFENESIN
     Indication: Nasal congestion
     Dosage: TOOK 24 TABLETS IN TOTAL
     Route: 048
     Dates: start: 202408
  2. MUCINEX MAXIMUM STRENGTH [Suspect]
     Active Substance: GUAIFENESIN
     Indication: Productive cough

REACTIONS (3)
  - Foreign body in throat [Recovered/Resolved]
  - Product use complaint [Recovered/Resolved]
  - Product size issue [Unknown]
